FAERS Safety Report 16460012 (Version 1)
Quarter: 2019Q2

REPORT INFORMATION
  Report Type: Spontaneous
  Country: US (occurrence: US)
  Receive Date: 20190620
  Receipt Date: 20190620
  Transmission Date: 20190711
  Serious: No
  Sender: FDA-Public Use
  Company Number: US-ASTRAZENECA-2019SE77466

PATIENT
  Age: 23981 Day
  Sex: Female
  Weight: 144.7 kg

DRUGS (2)
  1. INSULIN HUMULIN R 500 [Concomitant]
     Indication: TYPE 2 DIABETES MELLITUS
  2. BYDUREON BCISE [Suspect]
     Active Substance: EXENATIDE
     Indication: ADJUVANT THERAPY
     Route: 058
     Dates: start: 20190514

REACTIONS (1)
  - Feeling abnormal [Unknown]

NARRATIVE: CASE EVENT DATE: 20190521
